FAERS Safety Report 14747454 (Version 1)
Quarter: 2018Q2

REPORT INFORMATION
  Report Type: Spontaneous
  Country: RU (occurrence: RU)
  Receive Date: 20180411
  Receipt Date: 20180411
  Transmission Date: 20180711
  Serious: Yes (Other)
  Sender: FDA-Public Use
  Company Number: RU-ASTRAZENECA-2018SE31522

PATIENT
  Age: 64 Year
  Sex: Male
  Weight: 74 kg

DRUGS (8)
  1. RAMIPRIL. [Concomitant]
     Active Substance: RAMIPRIL
  2. BETALOC ZOK [Concomitant]
     Active Substance: METOPROLOL SUCCINATE
     Dosage: 25 MG
     Dates: start: 201609
  3. ISOSORBIDE MONONITRATE. [Concomitant]
     Active Substance: ISOSORBIDE MONONITRATE
  4. ACECARDOL [Concomitant]
     Active Substance: ASPIRIN
  5. ATORVASTATIN [Concomitant]
     Active Substance: ATORVASTATIN
  6. PREDUCTAL [Concomitant]
     Active Substance: TRIMETAZIDINE DIHYDROCHLORIDE
  7. BRILINTA [Suspect]
     Active Substance: TICAGRELOR
     Indication: ANGINA UNSTABLE
     Route: 048
     Dates: start: 201609
  8. BETALOC ZOK [Concomitant]
     Active Substance: METOPROLOL SUCCINATE
     Dosage: 50 MG
     Dates: start: 201609

REACTIONS (6)
  - Musculoskeletal pain [Not Recovered/Not Resolved]
  - Off label use [Not Recovered/Not Resolved]
  - Product use issue [Not Recovered/Not Resolved]
  - Bradycardia [Not Recovered/Not Resolved]
  - Blood pressure decreased [Recovered/Resolved]
  - Coronary artery stenosis [Not Recovered/Not Resolved]

NARRATIVE: CASE EVENT DATE: 201801
